FAERS Safety Report 21764679 (Version 1)
Quarter: 2022Q4

REPORT INFORMATION
  Report Type: Spontaneous
  Country: NL (occurrence: NL)
  Receive Date: 20221222
  Receipt Date: 20221222
  Transmission Date: 20230113
  Serious: Yes (Life-Threatening)
  Sender: FDA-Public Use
  Company Number: None

PATIENT
  Sex: Male
  Weight: 89 kg

DRUGS (11)
  1. VALSARTAN [Suspect]
     Active Substance: VALSARTAN
     Indication: Hypertension
     Dosage: 320 MILLIGRAM DAILY; BRAND NAME NOT SPECIFIED, FORM STRENGTH : 80 MG, THERAPY END DATE : ASKU
     Route: 065
     Dates: start: 20120101
  2. VALSARTAN [Suspect]
     Active Substance: VALSARTAN
     Indication: Arrhythmia
  3. ISOSORBIDE MONONITRATE [Concomitant]
     Active Substance: ISOSORBIDE MONONITRATE
     Indication: Product used for unknown indication
     Dosage: BRAND NAME NOT SPECIFIED, FORM STRENGTH : 10 MG, THERAPY START AND END DATE : ASKU
     Route: 065
  4. PREGABALIN [Concomitant]
     Active Substance: PREGABALIN
     Indication: Product used for unknown indication
     Dosage: BRAND NAME NOT SPECIFIED, THERAPY START AND END DATE : ASKU
     Route: 065
  5. TRAMADOL HYDROCHLORIDE [Concomitant]
     Active Substance: TRAMADOL HYDROCHLORIDE
     Indication: Product used for unknown indication
     Dosage: BRAND NAME NOT SPECIFIED, THERAPY START AND END DATE : ASKU
     Route: 065
  6. NITROGLYCERIN [Concomitant]
     Active Substance: NITROGLYCERIN
     Indication: Product used for unknown indication
     Dosage: BRAND NAME NOT SPECIFIED, FORM STRENGTH : 0.4 MG, THERAPY START AND END DATE : ASKU
     Route: 065
  7. FUROSEMIDE [Concomitant]
     Active Substance: FUROSEMIDE
     Indication: Product used for unknown indication
     Dosage: BRAND NAME NOT SPECIFIED, THERAPY START AND END DATE : ASKU
     Route: 065
  8. PHENPROCOUMON [Concomitant]
     Active Substance: PHENPROCOUMON
     Indication: Product used for unknown indication
     Dosage: FORM STRENGTH : 3 MG, THERAPY START AND END DATE : ASKU
     Route: 065
  9. AMLODIPINE BESYLATE [Concomitant]
     Active Substance: AMLODIPINE BESYLATE
     Indication: Product used for unknown indication
     Dosage: BRAND NAME NOT SPECIFIED, THERAPY START AND END DATE : ASKU
     Route: 065
  10. CARVEDILOL [Concomitant]
     Active Substance: CARVEDILOL
     Indication: Product used for unknown indication
     Dosage: BRAND NAME NOT SPECIFIED, FORM STRENGTH : 3.125 MG, THERAPY START AND END DATE : ASKU
     Route: 065
  11. LANOXIN [Concomitant]
     Active Substance: DIGOXIN
     Indication: Product used for unknown indication
     Dosage: FORM STRENGTH : 0.125 MG, THERAPY START AND END DATE : ASKU
     Route: 065

REACTIONS (1)
  - Muscle spasms [Not Recovered/Not Resolved]
